FAERS Safety Report 5680587-1 (Version None)
Quarter: 2008Q1

REPORT INFORMATION
  Report Type: 
  Country: None (occurrence: None)
  Receive Date: 20080326
  Receipt Date: 20080317
  Transmission Date: 20080703
  Serious: Yes (Disabling, Other)
  Sender: FDA-Public Use
  Company Number: US-PURDUE-USA_2008_0032021

PATIENT
  Age: 71 Year
  Sex: Female

DRUGS (1)
  1. MS CONTIN [Suspect]
     Indication: PAIN
     Dosage: 30 MG, TID

REACTIONS (8)
  - BURNING SENSATION [None]
  - DRUG DEPENDENCE [None]
  - DRUG WITHDRAWAL SYNDROME [None]
  - INTERVERTEBRAL DISC PROTRUSION [None]
  - LOWER MOTOR NEURONE LESION [None]
  - NEUROGENIC BLADDER [None]
  - PARAPLEGIA [None]
  - THROMBOSIS [None]
